FAERS Safety Report 25276538 (Version 1)
Quarter: 2025Q2

REPORT INFORMATION
  Report Type: Spontaneous
  Country: US (occurrence: US)
  Receive Date: 20250507
  Receipt Date: 20250507
  Transmission Date: 20250717
  Serious: Yes (Other)
  Sender: LUOXIN AUROVITAS PHARMA(CHENGDU)
  Company Number: US-LUOXIN-LUX-2025-US-LIT-00009

PATIENT
  Age: 68 Year
  Sex: Male

DRUGS (7)
  1. ALBUTEROL SULFATE [Suspect]
     Active Substance: ALBUTEROL SULFATE
     Indication: Bradyarrhythmia
     Route: 065
  2. DOPAMINE [Suspect]
     Active Substance: DOPAMINE HYDROCHLORIDE
     Indication: Bradyarrhythmia
     Route: 065
  3. ISOPROTERENOL [Suspect]
     Active Substance: ISOPROTERENOL
     Indication: Bradyarrhythmia
     Route: 065
  4. EPINEPHRINE [Suspect]
     Active Substance: EPINEPHRINE
     Indication: Bradyarrhythmia
     Route: 065
  5. AMINOPHYLLINE [Suspect]
     Active Substance: AMINOPHYLLINE
     Indication: Bradyarrhythmia
     Route: 065
  6. SCOPOLAMINE [Suspect]
     Active Substance: SCOPOLAMINE
     Indication: Bradyarrhythmia
     Route: 065
  7. levothyroxine-sodium (levothyroxine) [Concomitant]
     Indication: Decompensated hypothyroidism
     Route: 042

REACTIONS (1)
  - Drug ineffective [Unknown]
